FAERS Safety Report 5765027-6 (Version None)
Quarter: 2008Q2

REPORT INFORMATION
  Report Type: 
  Country: None (occurrence: None)
  Receive Date: 20080605
  Receipt Date: 20080528
  Transmission Date: 20081010
  Serious: Yes (Disabling, Other)
  Sender: FDA-Public Use
  Company Number: 163-21880-08030931

PATIENT
  Age: 38 Year
  Sex: Male

DRUGS (8)
  1. REVLIMID [Suspect]
     Indication: AMYLOIDOSIS
     Dosage: 15 MG, DAILY, FOR 21 DAYS, EVERY 28 DAYS, ORAL
     Route: 048
     Dates: start: 20080218, end: 20080307
  2. REVLIMID [Suspect]
     Indication: MULTIPLE MYELOMA
     Dosage: 15 MG, DAILY, FOR 21 DAYS, EVERY 28 DAYS, ORAL
     Route: 048
     Dates: start: 20080218, end: 20080307
  3. CYMBALTA [Concomitant]
  4. DEXAMETHASONE TAB [Concomitant]
  5. DURAGESIC-100 [Concomitant]
  6. MAGNESIUM (MAGNESIUM) [Concomitant]
  7. OXYCODONE HCL [Concomitant]
  8. VALTREX [Concomitant]

REACTIONS (15)
  - CARDIAC FAILURE CONGESTIVE [None]
  - CARDIOMEGALY [None]
  - CONSTIPATION [None]
  - FATIGUE [None]
  - HAEMOGLOBIN DECREASED [None]
  - MUSCULAR WEAKNESS [None]
  - NAUSEA [None]
  - NEUTROPHIL COUNT DECREASED [None]
  - NIGHT SWEATS [None]
  - PLATELET COUNT DECREASED [None]
  - PLEURAL EFFUSION [None]
  - PULMONARY OEDEMA [None]
  - SCROTAL SWELLING [None]
  - VOMITING [None]
  - WEIGHT INCREASED [None]
